FAERS Safety Report 20655847 (Version 1)
Quarter: 2022Q1

REPORT INFORMATION
  Report Type: Spontaneous
  Country: CA (occurrence: CA)
  Receive Date: 20220330
  Receipt Date: 20220330
  Transmission Date: 20220424
  Serious: Yes (Hospitalization)
  Sender: FDA-Public Use
  Company Number: CA-TEVA-2022-CA-2020674

PATIENT
  Age: 60 Year
  Sex: Male
  Weight: 100 kg

DRUGS (37)
  1. CYCLOSPORINE [Suspect]
     Active Substance: CYCLOSPORINE
     Indication: Prophylaxis against graft versus host disease
     Route: 065
  2. CYCLOSPORINE [Suspect]
     Active Substance: CYCLOSPORINE
     Indication: Acute myeloid leukaemia
  3. FLUDARABINE [Suspect]
     Active Substance: FLUDARABINE PHOSPHATE
     Indication: Acute myeloid leukaemia
     Route: 065
  4. METHOTREXATE [Suspect]
     Active Substance: METHOTREXATE
     Indication: Prophylaxis against graft versus host disease
     Route: 065
  5. METHOTREXATE [Suspect]
     Active Substance: METHOTREXATE
     Indication: Acute myeloid leukaemia
  6. BUSULFAN [Suspect]
     Active Substance: BUSULFAN
     Indication: Acute myeloid leukaemia
     Dosage: 3.2 MG/KG, THERAPY DURATION: 8.0 DAYS
     Route: 065
  7. ACETAMINOPHEN [Concomitant]
     Active Substance: ACETAMINOPHEN
  8. DEXAMETHASONE [Concomitant]
     Active Substance: DEXAMETHASONE
     Route: 065
  9. DIPHENHYDRAMINE [Concomitant]
     Active Substance: DIPHENHYDRAMINE
  10. ENOXAPARIN [Concomitant]
     Active Substance: ENOXAPARIN
  11. EPINEPHRINE [Concomitant]
     Active Substance: EPINEPHRINE
  12. FAMCICLOVIR [Concomitant]
     Active Substance: FAMCICLOVIR
  13. FAMOTIDINE [Concomitant]
     Active Substance: FAMOTIDINE
  14. FINASTERIDE [Concomitant]
     Active Substance: FINASTERIDE
  15. FLORINEF ACETATE [Concomitant]
     Active Substance: FLUDROCORTISONE ACETATE
  16. FLUCONAZOLE [Concomitant]
     Active Substance: FLUCONAZOLE
  17. HYDROMORPHONE [Concomitant]
     Active Substance: HYDROMORPHONE
  18. LEVOTHYROXINE [Concomitant]
     Active Substance: LEVOTHYROXINE
  19. LORAZEPAM [Concomitant]
     Active Substance: LORAZEPAM
     Route: 065
  20. MEPERIDINE [Concomitant]
     Active Substance: MEPERIDINE
  21. METHYLPREDNISOLONE SODIUM SUCCINATE [Concomitant]
     Active Substance: METHYLPREDNISOLONE SODIUM SUCCINATE
  22. METOCLOPRAMIDE [Concomitant]
     Active Substance: METOCLOPRAMIDE
  23. MORPHINE [Concomitant]
     Active Substance: MORPHINE
  24. ONDANSETRON [Concomitant]
     Active Substance: ONDANSETRON
  25. PANTOPRAZOLE [Concomitant]
     Active Substance: PANTOPRAZOLE
  26. PENTAMIDINE ISETHIONATE [Concomitant]
     Active Substance: PENTAMIDINE ISETHIONATE
     Dosage: 300MG/VIAL BP
  27. PHENYTOIN [Concomitant]
     Active Substance: PHENYTOIN
  28. POLYETHYLENE GLYCOL [Concomitant]
     Active Substance: POLYETHYLENE GLYCOL
  29. PROCHLORPERAZINE [Concomitant]
     Active Substance: PROCHLORPERAZINE
  30. PSYLLIUM HUSK [Concomitant]
     Active Substance: PSYLLIUM HUSK
  31. RANITIDINE [Concomitant]
     Active Substance: RANITIDINE
  32. RAPAFLO [Concomitant]
     Active Substance: SILODOSIN
  33. SUCRALFATE [Concomitant]
     Active Substance: SUCRALFATE
  34. THYMOGLOBULIN [Concomitant]
     Active Substance: LAPINE T-LYMPHOCYTE IMMUNE GLOBULIN
  35. TRIAMCINOLONE [Concomitant]
     Active Substance: TRIAMCINOLONE
  36. VANCOMYCIN [Concomitant]
     Active Substance: VANCOMYCIN
  37. VITAMIN D [Concomitant]
     Active Substance: VITAMIN D NOS

REACTIONS (1)
  - Febrile neutropenia [Recovered/Resolved]
